FAERS Safety Report 8846004 (Version 1)
Quarter: 2012Q4

REPORT INFORMATION
  Report Type: 
  Country: US (occurrence: US)
  Receive Date: 20121017
  Receipt Date: 20121017
  Transmission Date: 20130627
  Serious: Yes (Other)
  Sender: FDA-Public Use
  Company Number: US-ROCHE-1146130

PATIENT
  Sex: Female

DRUGS (3)
  1. ACCUTANE [Suspect]
     Indication: PRODUCT USED FOR UNKNOWN INDICATION
     Route: 065
     Dates: start: 1989
  2. ACCUTANE [Suspect]
     Route: 065
     Dates: start: 1991, end: 1992
  3. ACCUTANE [Suspect]
     Route: 065
     Dates: start: 1995

REACTIONS (1)
  - Injury [Unknown]
